FAERS Safety Report 6537398-4 (Version None)
Quarter: 2010Q1

REPORT INFORMATION
  Report Type: 
  Country: None (occurrence: None)
  Receive Date: 20100107
  Receipt Date: 20091223
  Transmission Date: 20100710
  Serious: Yes (Life-Threatening, Hospitalization, Disabling, Other)
  Sender: FDA-Public Use
  Company Number: DE-1180154

PATIENT
  Age: 61 Year
  Sex: Female

DRUGS (2)
  1. FLUORESCITE [Suspect]
     Indication: ANGIOGRAM RETINA
     Dosage: 5 ML (0.17 ML/S) INTRAVENOUS BOLUS
     Route: 040
     Dates: start: 20091130, end: 20091130
  2. RAMIPRIL [Concomitant]

REACTIONS (3)
  - ASTHENIA [None]
  - CEREBROVASCULAR ACCIDENT [None]
  - FALL [None]
